FAERS Safety Report 26136098 (Version 1)
Quarter: 2025Q4

REPORT INFORMATION
  Report Type: Spontaneous
  Country: US (occurrence: US)
  Receive Date: 20251209
  Receipt Date: 20251209
  Transmission Date: 20260118
  Serious: No
  Sender: SANOFI AVENTIS
  Company Number: US-SA-2025SA365221

PATIENT
  Sex: Male
  Weight: 86.168 kg

DRUGS (11)
  1. FABRAZYME [Suspect]
     Active Substance: AGALSIDASE BETA
     Indication: Fabry^s disease
     Dosage: 85 MG, QOW
     Route: 042
  2. SODIUM CHLORIDE [Concomitant]
     Active Substance: SODIUM CHLORIDE
  3. ACETAMINOPHEN [Concomitant]
     Active Substance: ACETAMINOPHEN
  4. EPINEPHRINE [EPINEPHRINE HYDROCHLORIDE] [Concomitant]
  5. STERILE WATER [Concomitant]
     Active Substance: WATER
  6. LEVOTHYROXINE SODIUM [Concomitant]
     Active Substance: LEVOTHYROXINE SODIUM
  7. PREDNISONE [Concomitant]
     Active Substance: PREDNISONE
  8. SODIUM CHLORIDE [Concomitant]
     Active Substance: SODIUM CHLORIDE
  9. EPIPEN [Concomitant]
     Active Substance: EPINEPHRINE
  10. ASPIRIN [Concomitant]
     Active Substance: ASPIRIN
  11. PROGRAF [Concomitant]
     Active Substance: TACROLIMUS

REACTIONS (3)
  - Arthritis infective [Unknown]
  - Tenderness [Unknown]
  - Arthralgia [Unknown]
